FAERS Safety Report 16059171 (Version 4)
Quarter: 2020Q4

REPORT INFORMATION
  Report Type: Spontaneous
  Country: US (occurrence: US)
  Receive Date: 20190311
  Receipt Date: 20201013
  Transmission Date: 20210113
  Serious: Yes (Other)
  Sender: FDA-Public Use
  Company Number: US-ASTRAZENECA-2018SF22571

PATIENT
  Sex: Male

DRUGS (11)
  1. PREVACID 24 HR [Suspect]
     Active Substance: LANSOPRAZOLE
     Route: 065
     Dates: start: 2000, end: 2016
  2. LISINOPRIL. [Concomitant]
     Active Substance: LISINOPRIL
  3. NEXIUM [Suspect]
     Active Substance: ESOMEPRAZOLE MAGNESIUM
     Indication: GASTROOESOPHAGEAL REFLUX DISEASE
     Route: 048
     Dates: start: 2000, end: 2016
  4. PRILOSEC OTC [Suspect]
     Active Substance: OMEPRAZOLE MAGNESIUM
     Route: 048
     Dates: start: 2000, end: 2016
  5. MOBIC [Concomitant]
     Active Substance: MELOXICAM
  6. ZOCOR [Concomitant]
     Active Substance: SIMVASTATIN
  7. DEXILANT [Suspect]
     Active Substance: DEXLANSOPRAZOLE
     Route: 065
     Dates: start: 2000, end: 2016
  8. NEXIUM 24HR [Suspect]
     Active Substance: ESOMEPRAZOLE MAGNESIUM
     Route: 048
     Dates: start: 2006, end: 2016
  9. PREVACID [Suspect]
     Active Substance: LANSOPRAZOLE
     Route: 065
     Dates: start: 2000, end: 2016
  10. PROTONIX [Suspect]
     Active Substance: PANTOPRAZOLE SODIUM
     Route: 065
     Dates: start: 2000, end: 2016
  11. PRILOSEC [Suspect]
     Active Substance: OMEPRAZOLE MAGNESIUM
     Indication: GASTROOESOPHAGEAL REFLUX DISEASE
     Route: 048
     Dates: start: 2000, end: 2016

REACTIONS (3)
  - Renal injury [Unknown]
  - Chronic kidney disease [Unknown]
  - Renal failure [Unknown]
